FAERS Safety Report 8113796-2 (Version None)
Quarter: 2012Q1

REPORT INFORMATION
  Report Type: 
  Country: None (occurrence: None)
  Receive Date: 20120203
  Receipt Date: 20120201
  Transmission Date: 20120608
  Serious: Yes (Hospitalization, Other)
  Sender: FDA-Public Use
  Company Number: IT-AMGEN-ITASP2011023528

PATIENT
  Age: 77 Year
  Sex: Female

DRUGS (1)
  1. VECTIBIX [Suspect]
     Indication: COLON CANCER
     Dosage: 360 MG, UNK
     Route: 042
     Dates: start: 20110406, end: 20110406

REACTIONS (7)
  - BRONCHOSPASM [None]
  - OXYGEN SATURATION DECREASED [None]
  - INFUSION RELATED REACTION [None]
  - TACHYCARDIA [None]
  - RESPIRATORY DISORDER [None]
  - HYPERCAPNIA [None]
  - RESPIRATORY ACIDOSIS [None]
